FAERS Safety Report 8268968-3 (Version None)
Quarter: 2012Q2

REPORT INFORMATION
  Report Type: 
  Country: None (occurrence: None)
  Receive Date: 20120409
  Receipt Date: 20120330
  Transmission Date: 20120825
  Serious: Yes (Hospitalization)
  Sender: FDA-Public Use
  Company Number: US-BAYER-201037305NA

PATIENT
  Age: 45 Year
  Sex: Female
  Weight: 63 kg

DRUGS (17)
  1. EFFEXOR XR [Concomitant]
     Dosage: 150 MG, UNK
     Route: 048
  2. LEVOTHYROXINE SODIUM [Concomitant]
     Dosage: 0.05 MG, UNK
     Route: 048
  3. DROSPIRENONE AND ETHINYL ESTRADIOL [Suspect]
     Indication: PREMENSTRUAL SYNDROME
     Route: 048
  4. ALLEGRA [Concomitant]
     Dosage: 180 MG, UNK
     Route: 048
  5. MORPHINE SULFATE [Concomitant]
     Dosage: 15 MG, UNK
     Route: 048
  6. SIMVASTATIN [Concomitant]
     Dosage: 40 MG, UNK
     Route: 048
  7. VENLAFAXINE [Concomitant]
     Dosage: 75 MG, UNK
     Route: 048
  8. COLCHICINE [Concomitant]
     Dosage: 0.6 MG, BID
     Dates: start: 20090203
  9. NASAL STEROID [Concomitant]
     Indication: SINUSITIS
     Dosage: UNK
     Dates: start: 20090203
  10. VITAMIN B1 TAB [Concomitant]
     Dosage: UNK
     Dates: start: 20090203
  11. FISH OIL [Concomitant]
     Dosage: UNK
     Dates: start: 20090203
  12. YAZ [Suspect]
     Indication: PREMENSTRUAL SYNDROME
     Route: 048
  13. YASMIN [Suspect]
     Indication: PREMENSTRUAL SYNDROME
     Route: 048
  14. PREDNISONE [Concomitant]
     Dosage: 5 MG, UNK
     Route: 048
  15. MELATONIN [Concomitant]
     Indication: SLEEP DISORDER
     Dosage: UNK
     Dates: start: 20090203
  16. MULTI-VITAMIN [Concomitant]
     Dosage: UNK
     Dates: start: 20090203
  17. OXYCODONE HCL [Concomitant]
     Dosage: 15 MG, QID
     Route: 048
     Dates: start: 20090203

REACTIONS (7)
  - DEPRESSION [None]
  - PAIN IN EXTREMITY [None]
  - DEEP VEIN THROMBOSIS [None]
  - DYSPNOEA [None]
  - PULMONARY EMBOLISM [None]
  - STRESS [None]
  - ANXIETY [None]
